FAERS Safety Report 23129926 (Version 3)
Quarter: 2024Q3

REPORT INFORMATION
  Report Type: Report from Study
  Country: CO (occurrence: CO)
  Receive Date: 20231031
  Receipt Date: 20240823
  Transmission Date: 20241017
  Serious: Yes (Hospitalization, Other)
  Sender: TAKEDA
  Company Number: CO-TAKEDA-2023TUS095254

PATIENT
  Age: 22 Year
  Sex: Female
  Weight: 52 kg

DRUGS (2)
  1. ICATIBANT [Suspect]
     Active Substance: ICATIBANT ACETATE
     Indication: Hereditary angioedema
     Dosage: UNK
     Route: 058
     Dates: start: 20200903
  2. ICATIBANT [Suspect]
     Active Substance: ICATIBANT ACETATE
     Indication: Hereditary angioedema
     Dosage: UNK
     Route: 058
     Dates: start: 20200903

REACTIONS (4)
  - Ovarian neoplasm [Unknown]
  - Weight increased [Unknown]
  - Weight decreased [Unknown]
  - Body height increased [Unknown]

NARRATIVE: CASE EVENT DATE: 20230928
